FAERS Safety Report 12291053 (Version 8)
Quarter: 2017Q3

REPORT INFORMATION
  Report Type: Report from Study
  Country: GB (occurrence: GB)
  Receive Date: 20160421
  Receipt Date: 20170924
  Transmission Date: 20171127
  Serious: Yes (Hospitalization)
  Sender: FDA-Public Use
  Company Number: PHHO2015GB020590

PATIENT
  Age: 69 Year
  Sex: Male
  Weight: 120.5 kg

DRUGS (37)
  1. OFATUMUMAB [Suspect]
     Active Substance: OFATUMUMAB
     Indication: CHRONIC LYMPHOCYTIC LEUKAEMIA
     Dosage: 1000 MG, QMO
     Route: 042
     Dates: start: 20151112, end: 20160420
  2. ALLOPURINOL. [Concomitant]
     Active Substance: ALLOPURINOL
     Indication: CHRONIC LYMPHOCYTIC LEUKAEMIA
     Dosage: 300 MG, UNK
     Route: 048
     Dates: start: 20151112, end: 20160203
  3. ACICLOVIR [Concomitant]
     Active Substance: ACYCLOVIR
     Indication: ANTIVIRAL TREATMENT
  4. DOXAZOSIN [Concomitant]
     Active Substance: DOXAZOSIN\DOXAZOSIN MESYLATE
     Indication: HYPERTENSION
     Dosage: 4 MG, QD
     Route: 048
     Dates: start: 19860615
  5. FOLIC ACID. [Concomitant]
     Active Substance: FOLIC ACID
     Indication: FOLATE DEFICIENCY
     Dosage: 5 MG, QD
     Route: 048
     Dates: start: 20150615
  6. LEVOFLOXACIN. [Concomitant]
     Active Substance: LEVOFLOXACIN
     Indication: SEPSIS
     Dosage: 500 MG, BID
     Route: 048
     Dates: start: 20151221, end: 20151223
  7. TAZOCIN [Concomitant]
     Active Substance: PIPERACILLIN SODIUM\TAZOBACTAM SODIUM
     Indication: SEPSIS
     Dosage: 4.5 G, QD
     Route: 042
     Dates: start: 20151218, end: 20151221
  8. COSMOCOL [Concomitant]
     Indication: CONSTIPATION
     Dosage: 13.8 G, UNK
     Route: 048
     Dates: start: 20130615
  9. IDELALISIB [Suspect]
     Active Substance: IDELALISIB
     Indication: CHRONIC LYMPHOCYTIC LEUKAEMIA
     Dosage: 150 MG, UNK
     Route: 048
     Dates: start: 20151112, end: 20160322
  10. HYDROCORTISONE. [Concomitant]
     Active Substance: HYDROCORTISONE
     Indication: CHRONIC LYMPHOCYTIC LEUKAEMIA
     Dosage: 100 MG, CYCLIC
     Route: 042
     Dates: start: 20151112
  11. G-CSF [Concomitant]
     Active Substance: GRANULOCYTE COLONY-STIMULATING FACTOR NOS
     Indication: CHRONIC LYMPHOCYTIC LEUKAEMIA
     Dosage: 300 UG, UNK
     Route: 058
     Dates: start: 20160411
  12. CO-AMOXICLAV [Concomitant]
     Active Substance: AMOXICILLIN\CLAVULANIC ACID
     Dosage: 500 MG, TID
     Route: 048
     Dates: start: 20160412, end: 20160415
  13. MORPHINE SULPHATE [Concomitant]
     Active Substance: MORPHINE SULFATE
     Indication: ANALGESIC THERAPY
     Dosage: 70 MG, BID
     Route: 048
     Dates: start: 20030615
  14. SENNA [Concomitant]
     Active Substance: SENNA LEAF\SENNOSIDES\SENNOSIDES A AND B
     Indication: CONSTIPATION
     Dosage: 7.5 MG, QD
     Route: 048
     Dates: start: 20030615
  15. CODEINE [Concomitant]
     Active Substance: CODEINE
     Indication: PAIN
     Dosage: 30 MG, PRN
     Route: 048
     Dates: start: 20160410, end: 20160412
  16. COMPARATOR CHLORAMBUCIL [Suspect]
     Active Substance: CHLORAMBUCIL
     Indication: CHRONIC LYMPHOCYTIC LEUKAEMIA
     Dosage: 10 MG, QD
     Route: 048
     Dates: start: 20151112, end: 20160426
  17. METOCLOPRAMIDE. [Concomitant]
     Active Substance: METOCLOPRAMIDE
     Indication: CHRONIC LYMPHOCYTIC LEUKAEMIA
     Dosage: 10 MG, UNK
     Route: 048
     Dates: start: 20151112
  18. COTRIMOXAZOLE [Concomitant]
     Active Substance: SULFAMETHOXAZOLE\TRIMETHOPRIM
     Indication: CHRONIC LYMPHOCYTIC LEUKAEMIA
     Dosage: 480 MG, UNK
     Route: 048
     Dates: start: 20151112
  19. COTRIMOXAZOLE [Concomitant]
     Active Substance: SULFAMETHOXAZOLE\TRIMETHOPRIM
     Indication: ANTIBIOTIC THERAPY
  20. CLARITHROMYCIN. [Concomitant]
     Active Substance: CLARITHROMYCIN
     Indication: ANTIBIOTIC THERAPY
     Dosage: 500 MG, BID
     Route: 048
     Dates: start: 20151202, end: 20151210
  21. AMITRIPTYLINE [Concomitant]
     Active Substance: AMITRIPTYLINE
     Indication: ANALGESIC THERAPY
     Dosage: 30 MG, QD
     Route: 048
     Dates: start: 20150615
  22. ATORVASTATIN [Concomitant]
     Active Substance: ATORVASTATIN
     Indication: HYPERCHOLESTEROLAEMIA
     Dosage: 20 MG, QD
     Route: 048
     Dates: start: 19860615
  23. FELODIPINE. [Concomitant]
     Active Substance: FELODIPINE
     Indication: HYPERTENSION
     Dosage: 2.5 MG, QD
     Route: 048
     Dates: start: 19900615
  24. PARACETAMOL [Concomitant]
     Active Substance: ACETAMINOPHEN
     Indication: ANALGESIC THERAPY
     Dosage: 1000 MG, PRN
     Route: 048
     Dates: start: 19860615
  25. TAMSULOSIN [Concomitant]
     Active Substance: TAMSULOSIN
     Indication: BENIGN PROSTATIC HYPERPLASIA
     Dosage: 400 UG, QD
     Route: 048
     Dates: start: 19900615
  26. ACICLOVIR [Concomitant]
     Active Substance: ACYCLOVIR
     Indication: CHRONIC LYMPHOCYTIC LEUKAEMIA
     Dosage: 400 MG, BID
     Route: 048
     Dates: start: 20151112
  27. TOLTERODINE [Concomitant]
     Active Substance: TOLTERODINE
     Indication: BLADDER SPASM
     Dosage: 1 MG, QD
     Route: 048
     Dates: start: 20150615
  28. E45 [Concomitant]
     Active Substance: LANOLIN\LIGHT MINERAL OIL\PARAFFIN
     Indication: DRY SKIN
     Dosage: QDS
     Route: 061
     Dates: start: 20160411
  29. CHLORPHENIRAMINE. [Concomitant]
     Active Substance: CHLORPHENIRAMINE
     Indication: CHRONIC LYMPHOCYTIC LEUKAEMIA
     Dosage: 10 MG, UNK
     Route: 042
     Dates: start: 20151112
  30. G-CSF [Concomitant]
     Active Substance: GRANULOCYTE COLONY-STIMULATING FACTOR NOS
     Indication: THERAPEUTIC PROCEDURE
     Dosage: 300 UG, UNK
     Route: 058
     Dates: start: 20160412, end: 20160415
  31. CO-AMOXICLAV [Concomitant]
     Active Substance: AMOXICILLIN\CLAVULANIC ACID
     Indication: ANTIBIOTIC THERAPY
     Dosage: 500 MG, TID
     Route: 048
     Dates: start: 20151202, end: 20151210
  32. LOSARTAN. [Concomitant]
     Active Substance: LOSARTAN
     Indication: HYPERTENSION
     Dosage: 100 MG, QD
     Route: 048
     Dates: start: 19900615
  33. TAZOCIN [Concomitant]
     Active Substance: PIPERACILLIN SODIUM\TAZOBACTAM SODIUM
     Indication: ANTIBIOTIC THERAPY
     Dosage: 4.5 G, TID
     Route: 042
     Dates: start: 20160409, end: 20160412
  34. PARACETAMOL [Concomitant]
     Active Substance: ACETAMINOPHEN
     Indication: CHRONIC LYMPHOCYTIC LEUKAEMIA
     Dosage: 1000 MG, UNK
     Route: 048
     Dates: start: 20151112
  35. AMITRIPTYLINE [Concomitant]
     Active Substance: AMITRIPTYLINE
     Dosage: 30 MG, QD
     Route: 048
     Dates: start: 20151202
  36. PANTOPRAZOLE [Concomitant]
     Active Substance: PANTOPRAZOLE
     Indication: GASTROOESOPHAGEAL REFLUX DISEASE
     Dosage: 20 MG, QD
     Route: 048
     Dates: start: 20000615
  37. PREGABALIN. [Concomitant]
     Active Substance: PREGABALIN
     Indication: ANALGESIC THERAPY
     Dosage: 300 MG, BID
     Route: 048
     Dates: start: 20030615

REACTIONS (4)
  - Pneumonia [Recovered/Resolved]
  - Neutropenic sepsis [Recovered/Resolved]
  - Lung infection [Recovered/Resolved]
  - Febrile neutropenia [Recovered/Resolved]

NARRATIVE: CASE EVENT DATE: 20151204
